FAERS Safety Report 25441387 (Version 1)
Quarter: 2025Q2

REPORT INFORMATION
  Report Type: Spontaneous
  Country: GB (occurrence: GB)
  Receive Date: 20250616
  Receipt Date: 20250616
  Transmission Date: 20250717
  Serious: Yes (Other)
  Sender: GUERBET
  Company Number: GB-GUERBET / GUERBET LABORATORIES-GB-20250121

PATIENT
  Age: 5 Decade
  Sex: Male

DRUGS (1)
  1. DOTAREM [Suspect]
     Active Substance: GADOTERATE MEGLUMINE
     Indication: Magnetic resonance imaging
     Route: 065
     Dates: start: 202111, end: 202111

REACTIONS (6)
  - Asthenia [Not Recovered/Not Resolved]
  - Muscle tightness [Not Recovered/Not Resolved]
  - Sensory processing sensitivity [Not Recovered/Not Resolved]
  - Cognitive disorder [Not Recovered/Not Resolved]
  - Product residue present [Recovering/Resolving]
  - Toxicity to various agents [Recovering/Resolving]
